FAERS Safety Report 6983687-9 (Version None)
Quarter: 2010Q3

REPORT INFORMATION
  Report Type: 
  Country: None (occurrence: None)
  Receive Date: 20100914
  Receipt Date: 20020314
  Transmission Date: 20110219
  Serious: Yes (Hospitalization)
  Sender: FDA-Public Use
  Company Number: US-WYE-H07127008

PATIENT
  Age: 72 Year
  Sex: Male

DRUGS (1)
  1. ADVIL LIQUI-GELS [Suspect]
     Route: 048
     Dates: start: 19990913

REACTIONS (4)
  - DIZZINESS [None]
  - LARGE INTESTINAL ULCER [None]
  - MELAENA [None]
  - OVERDOSE [None]
